FAERS Safety Report 14645548 (Version 1)
Quarter: 2018Q1

REPORT INFORMATION
  Report Type: Report from Study
  Country: None (occurrence: US)
  Receive Date: 20180316
  Receipt Date: 20180316
  Transmission Date: 20180509
  Serious: Yes (Hospitalization, Other)
  Sender: FDA-Public Use
  Company Number: US-ABBVIE-18K-163-2275203-00

PATIENT
  Age: 56 Year
  Sex: Male
  Weight: 51.76 kg

DRUGS (3)
  1. PREDNISONE. [Concomitant]
     Active Substance: PREDNISONE
     Indication: IMMUNOSUPPRESSION
  2. HUMIRA [Suspect]
     Active Substance: ADALIMUMAB
     Indication: ANKYLOSING SPONDYLITIS
     Route: 058
     Dates: start: 2003, end: 201603
  3. PROGRAFT [Concomitant]
     Active Substance: TACROLIMUS
     Indication: IMMUNOSUPPRESSION

REACTIONS (22)
  - Inflammation [Not Recovered/Not Resolved]
  - Coma [Recovered/Resolved]
  - Ankle fracture [Recovered/Resolved]
  - Kidney transplant rejection [Recovered/Resolved]
  - Cervical vertebral fracture [Recovered/Resolved]
  - Bone cancer [Recovering/Resolving]
  - Lip squamous cell carcinoma [Recovered/Resolved with Sequelae]
  - Dysphagia [Not Recovered/Not Resolved]
  - Lip squamous cell carcinoma [Recovered/Resolved]
  - Metastatic squamous cell carcinoma [Recovered/Resolved with Sequelae]
  - Swelling [Not Recovered/Not Resolved]
  - Traumatic liver injury [Recovered/Resolved]
  - Speech disorder [Not Recovered/Not Resolved]
  - Multiple fractures [Recovered/Resolved]
  - Rib fracture [Recovered/Resolved]
  - Lip squamous cell carcinoma [Recovered/Resolved]
  - Road traffic accident [Recovered/Resolved]
  - Renal impairment [Recovered/Resolved]
  - Immunosuppression [Not Recovered/Not Resolved]
  - Musculoskeletal pain [Not Recovered/Not Resolved]
  - End stage renal disease [Recovered/Resolved]
  - Foot fracture [Recovered/Resolved]

NARRATIVE: CASE EVENT DATE: 2003
